FAERS Safety Report 10534812 (Version 5)
Quarter: 2016Q2

REPORT INFORMATION
  Report Type: Report from Study
  Country: CA (occurrence: CA)
  Receive Date: 20141022
  Receipt Date: 20160502
  Transmission Date: 20160815
  Serious: Yes (Hospitalization, Other)
  Sender: FDA-Public Use
  Company Number: CA-ABBVIE-14K-028-1297551-00

PATIENT
  Age: 57 Year
  Sex: Female
  Weight: 74 kg

DRUGS (2)
  1. HUMIRA [Suspect]
     Active Substance: ADALIMUMAB
     Indication: CROHN^S DISEASE
     Route: 058
     Dates: start: 201401, end: 201404
  2. HUMIRA [Suspect]
     Active Substance: ADALIMUMAB
     Route: 058
     Dates: start: 2014, end: 20150907

REACTIONS (12)
  - Abdominal distension [Not Recovered/Not Resolved]
  - Postoperative wound complication [Recovering/Resolving]
  - Ileal stenosis [Recovered/Resolved]
  - Subileus [Recovered/Resolved]
  - Intestinal obstruction [Recovered/Resolved]
  - Strangulated hernia [Recovered/Resolved]
  - Impaired healing [Recovering/Resolving]
  - Gastritis [Recovered/Resolved]
  - Intestinal fibrosis [Recovered/Resolved]
  - Postoperative hernia [Recovered/Resolved]
  - Vitamin B12 decreased [Not Recovered/Not Resolved]
  - Sinusitis [Not Recovered/Not Resolved]

NARRATIVE: CASE EVENT DATE: 2014
